FAERS Safety Report 23359022 (Version 1)
Quarter: 2024Q1

REPORT INFORMATION
  Report Type: Spontaneous
  Country: CN (occurrence: None)
  Receive Date: 20240102
  Receipt Date: 20240102
  Transmission Date: 20240410
  Serious: Yes (Hospitalization, Other)
  Sender: FDA-Public Use
  Company Number: 2023A295542

PATIENT
  Age: 76 Year
  Sex: Female
  Weight: 58 kg

DRUGS (13)
  1. TAGRISSO [Suspect]
     Active Substance: OSIMERTINIB
     Indication: Lung neoplasm malignant
     Route: 048
     Dates: start: 20221015, end: 20230731
  2. ASPARTATE [Concomitant]
  3. BILIRUBIN [Concomitant]
     Active Substance: BILIRUBIN
  4. ENTECAVIR [Concomitant]
     Active Substance: ENTECAVIR
  5. OSIMERTINIB MESYLATE [Concomitant]
     Active Substance: OSIMERTINIB MESYLATE
  6. PIPERACILLIN [Concomitant]
     Active Substance: PIPERACILLIN
  7. SCLERA [Concomitant]
  8. TAZOBACTAM [Concomitant]
     Active Substance: TAZOBACTAM
  9. TENOFOVIR [Concomitant]
     Active Substance: TENOFOVIR
  10. ENTECAVIR [Concomitant]
     Active Substance: ENTECAVIR
  11. FERRITIN [Concomitant]
     Active Substance: FERRITIN
  12. PIPERACILLIN AND TAZOBACTAM [Concomitant]
     Active Substance: PIPERACILLIN SODIUM\TAZOBACTAM SODIUM
  13. TENOFOVIR ALAFENAMIDE FUMARATE [Concomitant]
     Active Substance: TENOFOVIR ALAFENAMIDE FUMARATE

REACTIONS (7)
  - Hepatic function abnormal [Not Recovered/Not Resolved]
  - Hepatic cirrhosis [Unknown]
  - Jaundice hepatocellular [Unknown]
  - Decreased appetite [Unknown]
  - Hypoalbuminaemia [Unknown]
  - Hepatitis B [Unknown]
  - Platelet count decreased [Not Recovered/Not Resolved]

NARRATIVE: CASE EVENT DATE: 20230803
